FAERS Safety Report 9017362 (Version 1)
Quarter: 2013Q1

REPORT INFORMATION
  Report Type: Spontaneous
  Country: US (occurrence: US)
  Receive Date: 20130117
  Receipt Date: 20130117
  Transmission Date: 20140127
  Serious: Yes (Death, Other)
  Sender: FDA-Public Use
  Company Number: US-UCBSA-075188

PATIENT
  Age: 23 Year
  Sex: Male

DRUGS (4)
  1. ALPRAZOLAM [Suspect]
     Dosage: INGST + INHAL
  2. MORPHINE [Suspect]
     Dosage: INGST + INHAL
  3. OXYCODONE [Suspect]
     Dosage: INGST + INHAL
  4. DIAZEPAM [Suspect]
     Dosage: INGST + INHAL

REACTIONS (1)
  - Completed suicide [Fatal]
